FAERS Safety Report 8616814-8 (Version None)
Quarter: 2012Q3

REPORT INFORMATION
  Report Type: 
  Country: None (occurrence: None)
  Receive Date: 20120823
  Receipt Date: 20120807
  Transmission Date: 20120928
  Serious: No
  Sender: FDA-Public Use
  Company Number: US-009507513-1208USA003336

PATIENT

DRUGS (2)
  1. IBUPROFEN [Concomitant]
  2. IMPLANON [Suspect]
     Indication: CONTRACEPTION
     Dosage: UNK
     Route: 059
     Dates: start: 20111228

REACTIONS (3)
  - COITAL BLEEDING [None]
  - UTERINE DISORDER [None]
  - METRORRHAGIA [None]
